FAERS Safety Report 25641607 (Version 1)
Quarter: 2025Q3

REPORT INFORMATION
  Report Type: Spontaneous
  Country: EU (occurrence: EU)
  Receive Date: 20250804
  Receipt Date: 20250804
  Transmission Date: 20251021
  Serious: Yes (Death, Other)
  Sender: NOVARTIS
  Company Number: EU-002147023-NVSC2023NL269960

PATIENT

DRUGS (3)
  1. PAZOPANIB [Suspect]
     Active Substance: PAZOPANIB
     Indication: Renal cell carcinoma
     Route: 065
  2. PAZOPANIB [Suspect]
     Active Substance: PAZOPANIB
     Indication: Soft tissue sarcoma
  3. PAZOPANIB [Suspect]
     Active Substance: PAZOPANIB
     Indication: Neoplasm

REACTIONS (4)
  - Drug-induced liver injury [Fatal]
  - Renal cell carcinoma [Fatal]
  - Soft tissue sarcoma [Fatal]
  - Malignant neoplasm progression [Fatal]
